FAERS Safety Report 17750410 (Version 2)
Quarter: 2020Q2

REPORT INFORMATION
  Report Type: Spontaneous
  Country: ES (occurrence: ES)
  Receive Date: 20200506
  Receipt Date: 20200520
  Transmission Date: 20200714
  Serious: Yes (Life-Threatening, Hospitalization)
  Sender: FDA-Public Use
  Company Number: ES-TEVA-2020-ES-1230308

PATIENT
  Age: 26 Year
  Sex: Male

DRUGS (20)
  1. HIDROXICLOROQUINA (2143A) [Suspect]
     Active Substance: HYDROXYCHLOROQUINE
     Indication: SUSPECTED COVID-19
     Dosage: 400 MILLIGRAM DAILY;
     Route: 048
     Dates: start: 20200413, end: 20200417
  2. FAMOTIDINA 20 MG COMPRIMIDO [Concomitant]
     Dosage: 20 MG
     Route: 048
     Dates: end: 20200417
  3. TACROLIMUS (2694A) [Concomitant]
     Active Substance: TACROLIMUS
     Dosage: 1 MG
     Route: 048
     Dates: start: 20200412, end: 20200413
  4. ALOPURINOL 100 MG COMPRIMIDO [Concomitant]
     Dosage: 100 MG
     Route: 048
  5. DOXAZOSINA (2387A) [Concomitant]
     Active Substance: DOXAZOSIN MESYLATE
     Dosage: 4 MG
     Route: 048
     Dates: end: 20200417
  6. PREDNISONA (886A) [Concomitant]
     Active Substance: PREDNISONE
     Indication: RENAL TRANSPLANT
     Dosage: 20 MG
     Route: 048
     Dates: start: 20200415
  7. MAGNOGENE 53 MG COMPRIMIDOS RECUBIERTOS [Concomitant]
     Indication: RENAL TRANSPLANT
     Dosage: 106 MG
     Route: 048
     Dates: end: 20200417
  8. PREDNISONA (886A) [Concomitant]
     Active Substance: PREDNISONE
     Dosage: 5 MG
     Dates: start: 2014, end: 20200411
  9. FOSRENOL [Concomitant]
     Active Substance: LANTHANUM CARBONATE
     Indication: RENAL TRANSPLANT
     Dosage: 750 MG 12 HOURS
     Route: 048
     Dates: end: 20200417
  10. METAMIZOL 575 MG CAPSULA [Concomitant]
     Dosage: 575 MG
     Route: 048
     Dates: start: 20200413, end: 20200417
  11. ZEMPLAR 1 MICROGRAMO CAPSULAS BLANDAS [Concomitant]
     Dosage: 1 MICROGRAM
     Route: 048
  12. ENOXAPARINA SODIO 20 MG (2.000 UI) INYECTABLE 0,2 ML [Concomitant]
     Indication: PROPHYLAXIS
     Dosage: 20 MG
     Route: 058
     Dates: start: 20200412, end: 20200417
  13. TACROLIMUS (2694A) [Concomitant]
     Active Substance: TACROLIMUS
     Dosage: 2 MG
     Route: 048
     Dates: start: 20200416
  14. PARACETAMOL (12A) [Concomitant]
     Active Substance: ACETAMINOPHEN
     Dosage: 1 GRAM 8 HOURS
     Route: 048
     Dates: start: 20200415, end: 20200417
  15. CARVEDILOL 25 MG COMPRIMIDO [Concomitant]
     Active Substance: CARVEDILOL
     Dosage: 25 MG
     Route: 048
  16. MYFORTIC 360 MG COMPRIMIDOS GASTRORRESISTENTES [Concomitant]
     Indication: RENAL TRANSPLANT
     Dosage: 360MG 12 HOURS
     Route: 048
     Dates: start: 2014, end: 20200412
  17. CEFTRIAXONA 2.000 MG INYECTABLE IV [Concomitant]
     Indication: URINARY TRACT INFECTION
     Dosage: 2 GRAM
     Route: 042
     Dates: start: 20200412, end: 20200416
  18. CEFIXIMA (2400A) [Concomitant]
     Indication: URINARY TRACT INFECTION
     Dosage: 200 MG 12 HOURS
     Route: 048
     Dates: start: 20200416, end: 20200417
  19. PREDNISONA (886A) [Concomitant]
     Active Substance: PREDNISONE
     Dosage: 20 MG
     Route: 048
     Dates: start: 20200412, end: 20200413
  20. TACROLIMUS (2694A) [Concomitant]
     Active Substance: TACROLIMUS
     Indication: RENAL TRANSPLANT
     Dosage: 2 MG
     Route: 048
     Dates: start: 2014, end: 20200411

REACTIONS (2)
  - Suicide attempt [Unknown]
  - Acute psychosis [Unknown]

NARRATIVE: CASE EVENT DATE: 20200417
